FAERS Safety Report 8728911 (Version 2)
Quarter: 2012Q4

REPORT INFORMATION
  Report Type: Report from Study
  Country: NL (occurrence: NL)
  Receive Date: 20120817
  Receipt Date: 20121108
  Transmission Date: 20130627
  Serious: Yes (Hospitalization)
  Sender: FDA-Public Use
  Company Number: NL-PFIZER INC-2012197450

PATIENT
  Age: 45 Year
  Sex: Female
  Weight: 80.9 kg

DRUGS (5)
  1. GENOTROPIN [Suspect]
     Dosage: 0.3 mg, 7/wk
     Route: 058
     Dates: start: 20040208
  2. HYDROCORTISONE [Suspect]
     Dosage: UNK
  3. FLORINEF [Suspect]
     Indication: ACTH DECREASED
     Dosage: UNK
     Dates: start: 19910701
  4. CALCIUM ^SANDOZ^ [Concomitant]
     Indication: OSTEOPOROSIS PROPHYLAXIS
     Dosage: UNK
     Dates: start: 19980515
  5. DEXAMETHASONE [Concomitant]
     Indication: ACTH DECREASED
     Dosage: UNK
     Dates: start: 20051222

REACTIONS (1)
  - Hypotension [Unknown]
